FAERS Safety Report 4648289-8 (Version None)
Quarter: 2005Q2

REPORT INFORMATION
  Report Type: 
  Country: None (occurrence: None)
  Receive Date: 20050331
  Receipt Date: 20050201
  Transmission Date: 20051028
  Serious: No
  Sender: FDA-Public Use
  Company Number: 05P-163-0289099-00

PATIENT
  Age: 43 Year
  Sex: Female

DRUGS (9)
  1. HUMIRA [Suspect]
     Indication: RHEUMATOID ARTHRITIS
     Dosage: 40 MG, 1 IN 2 WK, SUBCUTANEOUS
     Route: 058
     Dates: start: 20040101
  2. METHOTREXATE [Concomitant]
  3. NABUMETONE [Concomitant]
  4. FOSINOPRIL SODIUM [Concomitant]
  5. FENOFIBRATE [Concomitant]
  6. VENLAFAXINE HCL [Concomitant]
  7. LEVOTHYROXINE SODIUM [Concomitant]
  8. CLONAZEPAM [Concomitant]
  9. QUETIAPINE FUMARATE [Concomitant]

REACTIONS (4)
  - ARTHRALGIA [None]
  - NECK PAIN [None]
  - NERVE COMPRESSION [None]
  - PAIN IN EXTREMITY [None]
